FAERS Safety Report 8078806-X (Version None)
Quarter: 2012Q1

REPORT INFORMATION
  Report Type: 
  Country: None (occurrence: None)
  Receive Date: 20120124
  Receipt Date: 20120116
  Transmission Date: 20120608
  Serious: Yes (Death)
  Sender: FDA-Public Use
  Company Number: 7107283

PATIENT
  Age: 92 Year
  Sex: Female

DRUGS (2)
  1. HYPERBARIC OXYGEN (OXYGEN) [Concomitant]
  2. CYANOKIT [Suspect]
     Indication: POISONING
     Dosage: 5 GM, INTRAVENOUS (NOT OTHERWISE SPECIFIED)
     Route: 042

REACTIONS (2)
  - CARDIO-RESPIRATORY ARREST [None]
  - CHROMATURIA [None]
